FAERS Safety Report 7842878-5 (Version None)
Quarter: 2011Q4

REPORT INFORMATION
  Report Type: 
  Country: None (occurrence: None)
  Receive Date: 20111025
  Receipt Date: 20111020
  Transmission Date: 20120403
  Serious: Yes (Life-Threatening, Other)
  Sender: FDA-Public Use
  Company Number: JP-PFIZER INC-2011254423

PATIENT
  Age: 73 Year
  Sex: Male

DRUGS (17)
  1. GIBONZ [Concomitant]
     Dosage: 1 MG PER DAY
  2. CILOSTAZOL [Concomitant]
     Dosage: 40 MG PER DAY
  3. METFORMIN HCL [Concomitant]
     Dosage: 250
  4. GLYBURIDE [Concomitant]
     Dosage: 1.25 MG PER DAY
  5. OLOPATADINE HCL [Concomitant]
     Dosage: 5 MG PER DAY
     Route: 048
  6. MUCOSTA [Concomitant]
  7. LYRICA [Suspect]
     Indication: CERVICOBRACHIAL SYNDROME
     Dosage: 75 MG, 2X/DAY
     Route: 048
     Dates: start: 20110818, end: 20111003
  8. ANSATUR [Concomitant]
     Dosage: 300 MG PER DAY
  9. ENALAPRIL MALEATE [Concomitant]
     Dosage: 5
  10. MAGNESIUM OXIDE [Concomitant]
  11. JANUVIA [Concomitant]
     Dosage: 50 MG PER DAY
  12. BERAPROST SODIUM [Concomitant]
  13. HALCION [Concomitant]
     Dosage: 0.25 MCG PER DAY
     Route: 048
  14. NEUROTROPIN [Concomitant]
  15. JUVELA N [Concomitant]
  16. LYRICA [Suspect]
     Indication: PAIN
  17. METHYCOBAL [Concomitant]

REACTIONS (2)
  - ASTHMA [None]
  - THROAT IRRITATION [None]
